FAERS Safety Report 7595658-2 (Version None)
Quarter: 2011Q3

REPORT INFORMATION
  Report Type: 
  Country: None (occurrence: None)
  Receive Date: 20110707
  Receipt Date: 20110627
  Transmission Date: 20111222
  Serious: Yes (Death, Life-Threatening, Hospitalization, Disabling, Other)
  Sender: FDA-Public Use
  Company Number: US-MERCK-1106USA01169

PATIENT
  Age: 75 Year
  Sex: Female

DRUGS (3)
  1. NORVASC [Concomitant]
     Route: 065
  2. ZOCOR [Suspect]
     Indication: BLOOD CHOLESTEROL INCREASED
     Route: 048
     Dates: start: 20100315, end: 20101023
  3. LIPITOR [Suspect]
     Route: 065

REACTIONS (5)
  - PNEUMONIA [None]
  - RHABDOMYOLYSIS [None]
  - ASTHENIA [None]
  - FATIGUE [None]
  - MULTI-ORGAN FAILURE [None]
